FAERS Safety Report 10337463 (Version 2)
Quarter: 2014Q3

REPORT INFORMATION
  Report Type: Report from Study
  Country: US (occurrence: US)
  Receive Date: 20140724
  Receipt Date: 20140818
  Transmission Date: 20150326
  Serious: Yes (Other)
  Sender: FDA-Public Use
  Company Number: US-ACTELION-A-NJ2014-102589

PATIENT
  Age: 66 Year
  Sex: Female

DRUGS (19)
  1. NOVOLOG [Concomitant]
     Active Substance: INSULIN ASPART
     Dosage: 100 IU, UNK
     Route: 058
  2. COLACE [Concomitant]
     Active Substance: DOCUSATE SODIUM
     Dosage: 100 MG, QD
  3. HYDRALAZINE [Concomitant]
     Active Substance: HYDRALAZINE HYDROCHLORIDE
     Dosage: 50 MG, TID
  4. LANTUS [Concomitant]
     Active Substance: INSULIN GLARGINE
     Dosage: 100 IU, UNK
  5. MACITENTAN [Suspect]
     Active Substance: MACITENTAN
     Indication: COR PULMONALE CHRONIC
     Dosage: 10 MG, UNK
     Route: 048
     Dates: start: 20140115
  6. LISINOPRIL. [Concomitant]
     Active Substance: LISINOPRIL
     Dosage: 20 MG, QD
  7. ISOSORBIDE MONONITRATE. [Concomitant]
     Active Substance: ISOSORBIDE MONONITRATE
     Dosage: UNK, TID
  8. FOLIC ACID. [Concomitant]
     Active Substance: FOLIC ACID
  9. ADVAIR HFA [Concomitant]
     Active Substance: FLUTICASONE PROPIONATE\SALMETEROL XINAFOATE
  10. NORVASC [Concomitant]
     Active Substance: AMLODIPINE BESYLATE
     Dosage: 5 MG, QD
  11. VENTOLIN [Concomitant]
     Active Substance: ALBUTEROL SULFATE
  12. SINGULAIR [Concomitant]
     Active Substance: MONTELUKAST SODIUM
     Dosage: 10 MG, QD
  13. AVAPRO [Concomitant]
     Active Substance: IRBESARTAN
     Dosage: 300 MG, QD
  14. VYTORIN [Concomitant]
     Active Substance: EZETIMIBE\SIMVASTATIN
     Dosage: 10 MG, QD
  15. TICLID [Concomitant]
     Active Substance: TICLOPIDINE HYDROCHLORIDE
     Dosage: 250 MG, QD
  16. PRILOSEC [Concomitant]
     Active Substance: OMEPRAZOLE MAGNESIUM
  17. LETAIRIS [Concomitant]
     Active Substance: AMBRISENTAN
     Dosage: 10 MG, QD
  18. COREG [Concomitant]
     Active Substance: CARVEDILOL
     Dosage: 25 MG, BID
  19. LYRICA [Concomitant]
     Active Substance: PREGABALIN
     Dosage: 75 MG, QD

REACTIONS (2)
  - Asthenia [Unknown]
  - Dialysis [Unknown]
